FAERS Safety Report 4988025-9 (Version None)
Quarter: 2006Q2

REPORT INFORMATION
  Report Type: 
  Country: None (occurrence: None)
  Receive Date: 20060424
  Receipt Date: 20060407
  Transmission Date: 20061013
  Serious: Yes (Hospitalization)
  Sender: FDA-Public Use
  Company Number: 2006RR-01952

PATIENT
  Age: 73 Year
  Sex: Female

DRUGS (12)
  1. FOLIC ACID [Suspect]
  2. HUMIRA [Suspect]
     Indication: RHEUMATOID ARTHRITIS
     Dosage: 40 MG FORTNIGHT
     Dates: start: 20040415
  3. DIDRONEL [Suspect]
  4. RANITIDINE [Suspect]
  5. ATENOLOL [Suspect]
  6. TENORETIC 100 [Suspect]
  7. ALENDRONATE SODIUM [Suspect]
  8. OMEPRAZOLE [Suspect]
  9. DICLOFENAC SODIUM [Suspect]
  10. ARTHROTEC [Suspect]
  11. METHOTREXATE [Concomitant]
  12. PREDNISOLONE [Concomitant]

REACTIONS (4)
  - DIARRHOEA [None]
  - ESCHERICHIA INFECTION [None]
  - GASTRIC INFECTION [None]
  - URINARY TRACT INFECTION [None]
